FAERS Safety Report 8171347-0 (Version None)
Quarter: 2012Q1

REPORT INFORMATION
  Report Type: 
  Country: None (occurrence: None)
  Receive Date: 20120104
  Receipt Date: 20111206
  Transmission Date: 20120608
  Serious: No
  Sender: FDA-Public Use
  Company Number: 2011HGS-002920

PATIENT
  Age: 48 Year
  Sex: Female
  Weight: 58.9676 kg

DRUGS (10)
  1. PLAQUENIL (HYDROXYCHLOROQUINE SULFATE)(HYDROXYCHLOROQUINE SULFATE) [Concomitant]
  2. BENLYSTA [Suspect]
     Indication: SYSTEMIC LUPUS ERYTHEMATOSUS
     Dosage: 1 IN 28 D, INTRAVENOUS DRIP
     Route: 041
     Dates: start: 20110808
  3. LIDOCAINE [Concomitant]
  4. TRAZADONE (TRAZADONE)(TRAZADONE) [Concomitant]
  5. IMITREX(SUMATRIPTAN SUCCINATE)(SUMATRIPTAN SUCCINATE) [Concomitant]
  6. PREDNISONE [Concomitant]
  7. LORAZEPAM [Concomitant]
  8. MISOPROSTOL [Concomitant]
  9. CELEXA [Concomitant]
  10. TOPOMAX (TOPIRAMATE) (TOPIRAMATE) [Concomitant]

REACTIONS (15)
  - PARAESTHESIA [None]
  - HEADACHE [None]
  - FALL [None]
  - MUSCLE SPASMS [None]
  - BLOOD POTASSIUM DECREASED [None]
  - NECK PAIN [None]
  - NASOPHARYNGITIS [None]
  - VISUAL IMPAIRMENT [None]
  - ALOPECIA [None]
  - MIGRAINE [None]
  - SPEECH DISORDER [None]
  - STRESS [None]
  - NAUSEA [None]
  - HYPOAESTHESIA [None]
  - EYE DISORDER [None]
